FAERS Safety Report 9941871 (Version 1)
Quarter: 2014Q1

REPORT INFORMATION
  Report Type: Report from Study
  Country: US (occurrence: US)
  Receive Date: 20140303
  Receipt Date: 20140303
  Transmission Date: 20141002
  Serious: No
  Sender: FDA-Public Use
  Company Number: US-ABBVIE-13P-163-1043608-00

PATIENT
  Age: 41 Year
  Sex: Female

DRUGS (4)
  1. HUMIRA [Suspect]
     Indication: CROHN^S DISEASE
     Dates: start: 20130121, end: 20130121
  2. DOXYCYCLINE [Concomitant]
     Indication: STAPHYLOCOCCAL INFECTION
     Dosage: 1 TABLET DAILY
  3. HYDROCODONE [Concomitant]
     Indication: ABDOMINAL PAIN
  4. XANAX [Concomitant]
     Indication: ANXIETY

REACTIONS (10)
  - Dizziness [Not Recovered/Not Resolved]
  - Pain [Recovering/Resolving]
  - Dysphagia [Not Recovered/Not Resolved]
  - Feeling hot [Recovering/Resolving]
  - Flushing [Recovering/Resolving]
  - Arthralgia [Recovering/Resolving]
  - Myalgia [Recovering/Resolving]
  - Musculoskeletal stiffness [Recovering/Resolving]
  - Dyspnoea [Recovering/Resolving]
  - Epistaxis [Not Recovered/Not Resolved]
